FAERS Safety Report 9617417 (Version 1)
Quarter: 2013Q4

REPORT INFORMATION
  Report Type: Spontaneous
  Country: JP (occurrence: JP)
  Receive Date: 20131011
  Receipt Date: 20131011
  Transmission Date: 20140711
  Serious: Yes (Other)
  Sender: FDA-Public Use
  Company Number: PHHY2013JP114215

PATIENT
  Sex: Male

DRUGS (1)
  1. VOLTAREN [Suspect]
     Dosage: 25 MG, PRN
     Route: 048

REACTIONS (3)
  - Nephrotic syndrome [Unknown]
  - Nephritis [Unknown]
  - Oedema peripheral [Unknown]
